FAERS Safety Report 14715204 (Version 6)
Quarter: 2019Q1

REPORT INFORMATION
  Report Type: Spontaneous
  Country: CA (occurrence: CA)
  Receive Date: 20180404
  Receipt Date: 20190128
  Transmission Date: 20190417
  Serious: Yes (Hospitalization)
  Sender: FDA-Public Use
  Company Number: CA-BIOMARINAP-CA-2018-117656

PATIENT
  Sex: Female
  Weight: 64 kg

DRUGS (3)
  1. ATASOL                             /00020001/ [Concomitant]
     Active Substance: ACETAMINOPHEN
     Indication: PREMEDICATION
     Dosage: 325 MG, SINGLE
     Route: 048
  2. VIMIZIM [Suspect]
     Active Substance: ELOSULFASE ALFA
     Indication: MUCOPOLYSACCHARIDOSIS IV
     Dosage: 2 MG/KG, QW
     Route: 042
     Dates: start: 20141020
  3. REACTINE                           /00884302/ [Concomitant]
     Active Substance: CETIRIZINE HYDROCHLORIDE
     Indication: PREMEDICATION
     Dosage: 10 MG, SINGLE
     Route: 048

REACTIONS (6)
  - Wound secretion [Unknown]
  - Scab [Unknown]
  - Spinal column stenosis [Unknown]
  - Pain in extremity [Not Recovered/Not Resolved]
  - Spinal cord compression [Unknown]
  - Back pain [Unknown]
